FAERS Safety Report 13585354 (Version 1)
Quarter: 2017Q2

REPORT INFORMATION
  Report Type: Spontaneous
  Country: US (occurrence: US)
  Receive Date: 20170526
  Receipt Date: 20170526
  Transmission Date: 20170830
  Serious: Yes (Hospitalization, Other)
  Sender: FDA-Public Use
  Company Number: US-GLAXOSMITHKLINE-US2017077827

PATIENT
  Age: 30 Year
  Sex: Female

DRUGS (1)
  1. VENTOLIN HFA [Suspect]
     Active Substance: ALBUTEROL SULFATE
     Indication: ASTHMA
     Dosage: 3 PUFF(S), PRN
     Route: 055

REACTIONS (14)
  - Drug ineffective [Recovered/Resolved]
  - Infection [Unknown]
  - Product cleaning inadequate [Unknown]
  - Anxiety [Unknown]
  - Device use error [Unknown]
  - Malaise [Not Recovered/Not Resolved]
  - Asthma [Unknown]
  - Respiratory tract infection [Unknown]
  - Wheezing [Unknown]
  - Multiple allergies [Unknown]
  - Inhalation therapy [Unknown]
  - Live birth [Unknown]
  - Intentional overdose [Unknown]
  - Exposure during pregnancy [Unknown]

NARRATIVE: CASE EVENT DATE: 2016
